FAERS Safety Report 5431042-5 (Version None)
Quarter: 2007Q3

REPORT INFORMATION
  Report Type: 
  Country: None (occurrence: None)
  Receive Date: 20070830
  Receipt Date: 20070122
  Transmission Date: 20080115
  Serious: No
  Sender: FDA-Public Use
  Company Number: A0636576A

PATIENT

DRUGS (1)
  1. BUPROPION HCL [Suspect]
     Dates: start: 20070120

REACTIONS (4)
  - ADVERSE EVENT [None]
  - FEELING JITTERY [None]
  - HEADACHE [None]
  - NAUSEA [None]
